FAERS Safety Report 7734235-7 (Version None)
Quarter: 2011Q3

REPORT INFORMATION
  Report Type: 
  Country: None (occurrence: None)
  Receive Date: 20110907
  Receipt Date: 20110831
  Transmission Date: 20111222
  Serious: Yes (Hospitalization)
  Sender: FDA-Public Use
  Company Number: IN-SANOFI-AVENTIS-2011SA056548

PATIENT
  Age: 62 Year
  Sex: Female

DRUGS (4)
  1. INVESTIGATIONAL DRUG [Suspect]
     Route: 048
     Dates: start: 20110430, end: 20110502
  2. ENOXAPARIN SODIUM [Suspect]
     Route: 058
     Dates: start: 20110430, end: 20110504
  3. INVESTIGATIONAL DRUG [Suspect]
     Route: 048
     Dates: start: 20110506
  4. INVESTIGATIONAL DRUG [Suspect]
     Route: 048
     Dates: start: 20110503, end: 20110504

REACTIONS (8)
  - INTERNATIONAL NORMALISED RATIO INCREASED [None]
  - DILATATION VENTRICULAR [None]
  - OEDEMA PERIPHERAL [None]
  - TRICUSPID VALVE INCOMPETENCE [None]
  - DYSPNOEA [None]
  - PULMONARY EMBOLISM [None]
  - DILATATION ATRIAL [None]
  - CATARACT [None]
